FAERS Safety Report 8811758 (Version 1)
Quarter: 2012Q4

REPORT INFORMATION
  Report Type: Spontaneous
  Country: US (occurrence: None)
  Receive Date: 20120925
  Receipt Date: 20120925
  Transmission Date: 20130627
  Serious: Yes (Hospitalization)
  Sender: FDA-Public Use
  Company Number: None

PATIENT
  Age: 17 Year
  Sex: Male
  Weight: 64 kg

DRUGS (2)
  1. PEGASPARGASE [Suspect]
     Indication: ACUTE LYMPHOCYTIC LEUKEMIA
     Route: 030
     Dates: start: 20120823, end: 20120823
  2. PEGASPARGASE [Suspect]
     Indication: LEUKEMIA RELAPSE
     Route: 030
     Dates: start: 20120823, end: 20120823

REACTIONS (1)
  - Pancreatitis [None]
